FAERS Safety Report 5249218-9 (Version None)
Quarter: 2007Q1

REPORT INFORMATION
  Report Type: 
  Country: None (occurrence: None)
  Receive Date: 20070228
  Receipt Date: 20070223
  Transmission Date: 20070707
  Serious: Yes (Life-Threatening)
  Sender: FDA-Public Use
  Company Number: 2007GB00390

PATIENT
  Age: 79 Year
  Sex: Female
  Weight: 60 kg

DRUGS (7)
  1. QUETIAPINE FUMARATE [Suspect]
     Indication: DEMENTIA
     Route: 048
     Dates: start: 20050101, end: 20070130
  2. QUETIAPINE FUMARATE [Suspect]
     Indication: PSYCHOTIC DISORDER
     Route: 048
     Dates: start: 20050101, end: 20070130
  3. ARICEPT [Concomitant]
     Indication: DEMENTIA
     Route: 048
     Dates: start: 20060501
  4. ASPIRIN [Concomitant]
     Route: 048
  5. CITALOPRAM HYDROBROMIDE [Concomitant]
     Route: 048
  6. IRON SULPHATE [Concomitant]
     Route: 048
  7. LEVOTHYROXINE SODIUM [Concomitant]
     Route: 048

REACTIONS (1)
  - NEUTROPENIA [None]
